FAERS Safety Report 4345951-1 (Version None)
Quarter: 2004Q2

REPORT INFORMATION
  Report Type: 
  Country: None (occurrence: None)
  Receive Date: 20040423
  Receipt Date: 20040423
  Transmission Date: 20050107
  Serious: No
  Sender: FDA-Public Use
  Company Number: None

PATIENT
  Sex: Male
  Weight: 99.7913 kg

DRUGS (7)
  1. RISPERDAL [Suspect]
     Indication: ASPERGER'S DISORDER
     Dosage: .5 TO 1.0 MG 1X DAYILY ORAL
     Route: 048
     Dates: start: 19960901, end: 20010620
  2. TENEX [Concomitant]
  3. BUSPAR [Concomitant]
  4. ZOLOFT [Concomitant]
  5. PROZAC [Concomitant]
  6. . [Concomitant]
  7. SERZONE [Concomitant]

REACTIONS (6)
  - DIABETES MELLITUS NON-INSULIN-DEPENDENT [None]
  - HYPOTHYROIDISM [None]
  - INSULIN RESISTANCE [None]
  - PITUITARY-DEPENDENT CUSHING'S SYNDROME [None]
  - WEIGHT INCREASED [None]
  - WEIGHT LOSS POOR [None]
